FAERS Safety Report 17944061 (Version 2)
Quarter: 2020Q2

REPORT INFORMATION
  Report Type: Spontaneous
  Country: US (occurrence: US)
  Receive Date: 20200625
  Receipt Date: 20200629
  Transmission Date: 20200714
  Serious: Yes (Other)
  Sender: FDA-Public Use
  Company Number: US-PFIZER INC-2020242157

PATIENT
  Age: 62 Year
  Sex: Female
  Weight: 102.06 kg

DRUGS (1)
  1. HYDROCORTISONE. [Suspect]
     Active Substance: HYDROCORTISONE
     Indication: EMPTY SELLA SYNDROME
     Dosage: UNK, 2X/DAY(IN THE MORNING AND AT NIGHT)

REACTIONS (5)
  - Product use in unapproved indication [Unknown]
  - Hypothyroidism [Unknown]
  - Confusional state [Unknown]
  - Oestrogen deficiency [Unknown]
  - Off label use [Unknown]
